FAERS Safety Report 15424796 (Version 1)
Quarter: 2018Q3

REPORT INFORMATION
  Report Type: Report from Study
  Country: US (occurrence: US)
  Receive Date: 20180925
  Receipt Date: 20180925
  Transmission Date: 20181010
  Serious: Yes (Other)
  Sender: FDA-Public Use
  Company Number: US-AMGEN INC.-USASL2018130195

PATIENT
  Age: 65 Year
  Sex: Male

DRUGS (1)
  1. AIMOVIG [Suspect]
     Active Substance: ERENUMAB-AOOE
     Indication: PRODUCT USED FOR UNKNOWN INDICATION
     Dosage: UNK
     Route: 065
     Dates: start: 2018

REACTIONS (5)
  - Hypertension [Unknown]
  - Insomnia [Recovered/Resolved]
  - Hypersensitivity [Unknown]
  - Migraine [Unknown]
  - Hallucination [Unknown]

NARRATIVE: CASE EVENT DATE: 2018
